FAERS Safety Report 7549314-7 (Version None)
Quarter: 2011Q2

REPORT INFORMATION
  Report Type: 
  Country: None (occurrence: None)
  Receive Date: 20110615
  Receipt Date: 20030325
  Transmission Date: 20111010
  Serious: Yes (Hospitalization)
  Sender: FDA-Public Use
  Company Number: PHHO2003CA03777

PATIENT
  Sex: Female

DRUGS (4)
  1. NORVASC [Concomitant]
  2. ALDACTONE [Concomitant]
  3. DIOVAN [Suspect]
     Dosage: 80 MG
     Dates: start: 20020914
  4. LASIX [Concomitant]

REACTIONS (3)
  - CHEST DISCOMFORT [None]
  - CARDIAC FAILURE CONGESTIVE [None]
  - DIZZINESS [None]
